FAERS Safety Report 5031889-3 (Version None)
Quarter: 2006Q2

REPORT INFORMATION
  Report Type: 
  Country: None (occurrence: None)
  Receive Date: 20060616
  Receipt Date: 20060608
  Transmission Date: 20061013
  Serious: Yes (Hospitalization)
  Sender: FDA-Public Use
  Company Number: 2006PL000018

PATIENT
  Age: 42 Year
  Sex: Male

DRUGS (3)
  1. AZATHIOPRINE [Suspect]
     Indication: CROHN'S DISEASE
     Dosage: 2.5 MG/KG; QD; PO
     Route: 048
     Dates: start: 20000401, end: 20010801
  2. INFLIXIMAB (INFLIXIMAB) [Suspect]
     Indication: CROHN'S DISEASE
     Dosage: 5 MG/KG; 1X; IV
     Route: 042
     Dates: start: 20010601, end: 20010601
  3. PREDNISONE [Concomitant]

REACTIONS (5)
  - DIFFUSE LARGE B-CELL LYMPHOMA [None]
  - EPSTEIN-BARR VIRUS INFECTION [None]
  - ILEAL STENOSIS [None]
  - PELVIC ABSCESS [None]
  - PERITONEAL ABSCESS [None]
